FAERS Safety Report 14957449 (Version 3)
Quarter: 2018Q2

REPORT INFORMATION
  Report Type: Spontaneous
  Country: US (occurrence: US)
  Receive Date: 20180531
  Receipt Date: 20180605
  Transmission Date: 20180711
  Serious: No
  Sender: FDA-Public Use
  Company Number: US-PFIZER INC-2018222566

PATIENT
  Age: 85 Year
  Sex: Female
  Weight: 66 kg

DRUGS (1)
  1. ESTRING [Suspect]
     Active Substance: ESTRADIOL
     Indication: VULVOVAGINAL DRYNESS
     Dosage: 1 DF, EVERY 3 MONTHS
     Route: 067
     Dates: start: 2015

REACTIONS (4)
  - Drug ineffective [Not Recovered/Not Resolved]
  - Product quality issue [Not Recovered/Not Resolved]
  - Vaginal infection [Unknown]
  - Intentional product misuse [Unknown]

NARRATIVE: CASE EVENT DATE: 201804
